FAERS Safety Report 15532321 (Version 1)
Quarter: 2018Q4

REPORT INFORMATION
  Report Type: Spontaneous
  Country: US (occurrence: US)
  Receive Date: 20181019
  Receipt Date: 20181019
  Transmission Date: 20190205
  Serious: No
  Sender: FDA-Public Use
  Company Number: US-GLAXOSMITHKLINE-US2018GSK184194

PATIENT
  Sex: Male
  Weight: 121 kg

DRUGS (2)
  1. EXCEDRIN [Suspect]
     Active Substance: ACETAMINOPHEN\ASPIRIN\CAFFEINE
     Indication: FIBROMYALGIA
     Dosage: UNK
     Route: 048
  2. EXCEDRIN [Suspect]
     Active Substance: ACETAMINOPHEN\ASPIRIN\CAFFEINE
     Indication: PAIN

REACTIONS (4)
  - Gastric disorder [Not Recovered/Not Resolved]
  - Drug ineffective [Unknown]
  - Oesophageal disorder [Not Recovered/Not Resolved]
  - Product use in unapproved indication [Unknown]
